FAERS Safety Report 6700983-0 (Version None)
Quarter: 2010Q2

REPORT INFORMATION
  Report Type: 
  Country: None (occurrence: None)
  Receive Date: 20100428
  Receipt Date: 20100419
  Transmission Date: 20101027
  Serious: Yes (Other)
  Sender: FDA-Public Use
  Company Number: US-PFIZER INC-2010049081

PATIENT
  Sex: Male

DRUGS (5)
  1. LIPITOR [Suspect]
     Indication: HYPERLIPIDAEMIA
     Dosage: 40 MG
     Route: 048
     Dates: start: 20090301, end: 20100318
  2. ONGLYZA [Suspect]
     Indication: DIABETES MELLITUS
     Dosage: 5 MG
     Dates: start: 20100119, end: 20100318
  3. GLUCOVANCE [Concomitant]
     Dosage: UNK
     Dates: start: 20090401
  4. LISINOPRIL [Concomitant]
  5. ACETYLSALICYLIC ACID [Concomitant]

REACTIONS (1)
  - PANCREATITIS [None]
